FAERS Safety Report 5397076-4 (Version None)
Quarter: 2007Q3

REPORT INFORMATION
  Report Type: 
  Country: None (occurrence: None)
  Receive Date: 20070723
  Receipt Date: 20070709
  Transmission Date: 20080115
  Serious: Yes (Hospitalization)
  Sender: FDA-Public Use
  Company Number: 232885K07USA

PATIENT
  Age: 34 Year
  Sex: Female

DRUGS (7)
  1. REBIF [Suspect]
     Indication: MULTIPLE SCLEROSIS
     Dosage: 44 MCG, 3 IN 1 WEEKS, SUBCUTANEOUS
     Route: 058
     Dates: start: 20070116, end: 20070301
  2. TYLENOL (COTYLENOL) [Concomitant]
  3. BACLOFEN [Concomitant]
  4. WELLBUTRIN [Concomitant]
  5. SINGULAIR [Concomitant]
  6. NEURONTIN [Concomitant]
  7. GLYBURIDE [Concomitant]

REACTIONS (3)
  - CONDITION AGGRAVATED [None]
  - CONVULSION [None]
  - MULTIPLE SCLEROSIS RELAPSE [None]
